FAERS Safety Report 8415023-5 (Version None)
Quarter: 2012Q2

REPORT INFORMATION
  Report Type: 
  Country: None (occurrence: None)
  Receive Date: 20120606
  Receipt Date: 20120525
  Transmission Date: 20120825
  Serious: Yes (Other)
  Sender: FDA-Public Use
  Company Number: AU-JNJFOC-20120520643

PATIENT
  Sex: Male

DRUGS (2)
  1. REMICADE [Suspect]
     Indication: CROHN'S DISEASE
     Route: 042
     Dates: start: 20120403
  2. REMICADE [Suspect]
     Dosage: 6 MONTHS AGO
     Route: 042

REACTIONS (3)
  - JOINT INJURY [None]
  - HERPES ZOSTER [None]
  - INFLAMMATORY MARKER INCREASED [None]
